FAERS Safety Report 4343092-0 (Version None)
Quarter: 2004Q2

REPORT INFORMATION
  Report Type: 
  Country: None (occurrence: None)
  Receive Date: 20040420
  Receipt Date: 20040406
  Transmission Date: 20050107
  Serious: Yes (Death)
  Sender: FDA-Public Use
  Company Number: 2004S1000718

PATIENT
  Age: 53 Year
  Sex: Male

DRUGS (9)
  1. CLOZAPINE [Suspect]
     Indication: SCHIZOAFFECTIVE DISORDER
     Dosage: 200 MG Q AM + 300 MG Q HS, ORAL
     Route: 048
     Dates: start: 20011108, end: 20040307
  2. DOXAZOSIN MESYLATE [Concomitant]
  3. MULTIVITAMIN [Concomitant]
  4. DIVALPROEX SODIUM [Concomitant]
  5. FOLIC ACID [Concomitant]
  6. THIAMINE [Concomitant]
  7. MULTI-VITAMIN [Concomitant]
  8. ZIPRASIDONE [Concomitant]
  9. LEVOFLOXACIN [Concomitant]

REACTIONS (1)
  - LUNG NEOPLASM MALIGNANT [None]
